FAERS Safety Report 8242769-4 (Version None)
Quarter: 2012Q1

REPORT INFORMATION
  Report Type: 
  Country: None (occurrence: None)
  Receive Date: 20120329
  Receipt Date: 20120320
  Transmission Date: 20120608
  Serious: Yes (Life-Threatening, Hospitalization)
  Sender: FDA-Public Use
  Company Number: US-BAYER-200929905NA

PATIENT
  Age: 18 Year
  Sex: Female

DRUGS (3)
  1. YASMIN [Suspect]
  2. DROSPIRENONE AND ETHINYL ESTRADIOL [Suspect]
  3. YAZ [Suspect]

REACTIONS (8)
  - GENERAL PHYSICAL HEALTH DETERIORATION [None]
  - CEREBROVASCULAR ACCIDENT [None]
  - PAIN [None]
  - ANXIETY [None]
  - ANHEDONIA [None]
  - INJURY [None]
  - CEREBRAL THROMBOSIS [None]
  - EMOTIONAL DISTRESS [None]
